FAERS Safety Report 16365976 (Version 1)
Quarter: 2019Q2

REPORT INFORMATION
  Report Type: Spontaneous
  Country: US (occurrence: US)
  Receive Date: 20190529
  Receipt Date: 20190529
  Transmission Date: 20190711
  Serious: No
  Sender: FDA-Public Use
  Company Number: US-ASTRAZENECA-2019SE75507

PATIENT
  Age: 24650 Day
  Sex: Male
  Weight: 99.8 kg

DRUGS (3)
  1. OMEPRAZOLE. [Suspect]
     Active Substance: OMEPRAZOLE
     Indication: DYSPEPSIA
     Route: 048
     Dates: start: 20190511, end: 20190516
  2. PROBIOTICS [Concomitant]
     Active Substance: PROBIOTICS NOS
  3. OMEPRAZOLE. [Suspect]
     Active Substance: OMEPRAZOLE
     Indication: GASTROOESOPHAGEAL REFLUX DISEASE
     Route: 048
     Dates: start: 20190511, end: 20190516

REACTIONS (6)
  - Diabetes mellitus [Recovered/Resolved]
  - Hyperhidrosis [Recovered/Resolved]
  - Poor quality sleep [Recovered/Resolved]
  - Loss of consciousness [Recovered/Resolved]
  - Pollakiuria [Recovered/Resolved]
  - Abnormal dreams [Recovered/Resolved]

NARRATIVE: CASE EVENT DATE: 20190513
